FAERS Safety Report 12540390 (Version 1)
Quarter: 2016Q3

REPORT INFORMATION
  Report Type: Spontaneous
  Country: US (occurrence: None)
  Receive Date: 20160707
  Receipt Date: 20160707
  Transmission Date: 20161109
  Serious: Yes (Hospitalization)
  Sender: FDA-Public Use
  Company Number: None

PATIENT
  Age: 73 Year
  Sex: Female
  Weight: 53 kg

DRUGS (7)
  1. ATROPINE. [Concomitant]
     Active Substance: ATROPINE
  2. CAMPTOSAR [Concomitant]
     Active Substance: IRINOTECAN HYDROCHLORIDE
  3. 5FU [Concomitant]
     Active Substance: FLUOROURACIL
  4. DECADRON [Concomitant]
     Active Substance: DEXAMETHASONE
  5. OXALIPLATIN 100MG/20ML [Suspect]
     Active Substance: OXALIPLATIN
     Indication: PANCREATIC CARCINOMA
     Route: 042
     Dates: start: 20160614
  6. EMEND [Concomitant]
     Active Substance: APREPITANT
  7. ALOXI [Concomitant]
     Active Substance: PALONOSETRON HYDROCHLORIDE

REACTIONS (3)
  - Dyspnoea exertional [None]
  - Hypopnoea [None]
  - Stridor [None]

NARRATIVE: CASE EVENT DATE: 20160128
